FAERS Safety Report 17271947 (Version 1)
Quarter: 2020Q1

REPORT INFORMATION
  Report Type: Report from Study
  Country: GB (occurrence: GB)
  Receive Date: 20200115
  Receipt Date: 20200115
  Transmission Date: 20200409
  Serious: Yes (Other)
  Sender: FDA-Public Use
  Company Number: GB-TEVA-2020-GB-1164560

PATIENT
  Sex: Male

DRUGS (3)
  1. AMLODIPINE [Interacting]
     Active Substance: AMLODIPINE BESYLATE
     Route: 065
  2. RAMIPRIL. [Interacting]
     Active Substance: RAMIPRIL
     Route: 065
  3. COPAXONE [Suspect]
     Active Substance: GLATIRAMER ACETATE
     Route: 058
     Dates: start: 2017

REACTIONS (8)
  - Spinal pain [Unknown]
  - Blindness transient [Unknown]
  - Chest discomfort [Unknown]
  - Dyspnoea [Unknown]
  - Taste disorder [Unknown]
  - Tinnitus [Unknown]
  - Malaise [Unknown]
  - Drug interaction [Unknown]
